FAERS Safety Report 5016585-0 (Version None)
Quarter: 2006Q3

REPORT INFORMATION
  Report Type: 
  Country: None (occurrence: None)
  Receive Date: 20060414
  Receipt Date: 20050504
  Transmission Date: 20061208
  Serious: Yes (Other)
  Sender: FDA-Public Use
  Company Number: US-JNJFOC-20050404983

PATIENT
  Age: 53 Year
  Sex: Female

DRUGS (1)
  1. ULTRAM [Suspect]

REACTIONS (1)
  - DRUG ABUSER [None]
